FAERS Safety Report 24041779 (Version 1)
Quarter: 2024Q3

REPORT INFORMATION
  Report Type: Spontaneous
  Country: US (occurrence: US)
  Receive Date: 20240702
  Receipt Date: 20240702
  Transmission Date: 20241017
  Serious: No
  Sender: SAREPTA THERAPEUTICS
  Company Number: US-SAREPTA THERAPEUTICS INC.-SRP2024-004520

PATIENT
  Age: 21 Year
  Sex: Male
  Weight: 71.3 kg

DRUGS (11)
  1. EXONDYS 51 [Suspect]
     Active Substance: ETEPLIRSEN
     Indication: Duchenne muscular dystrophy
     Dosage: 2100 MILLIGRAM, WEEKLY
     Route: 042
     Dates: start: 20170302, end: 20240321
  2. EXONDYS 51 [Suspect]
     Active Substance: ETEPLIRSEN
     Dosage: 1600 MILLIGRAM, SINGLE
     Route: 042
     Dates: start: 20240328, end: 20240328
  3. EXONDYS 51 [Suspect]
     Active Substance: ETEPLIRSEN
     Dosage: 2200 MILLIGRAM, WEEKLY
     Route: 042
     Dates: start: 20240404
  4. LISINOPRIL [Concomitant]
     Active Substance: LISINOPRIL
     Indication: Product used for unknown indication
     Dosage: 10 MILLIGRAM, QD
     Route: 048
     Dates: start: 20190208
  5. PREDNISONE [Concomitant]
     Active Substance: PREDNISONE
     Indication: Malaise
     Dosage: 200 MILLIGRAM, TWICE WEEKLY EVERY SATURDAY AND SUNDAY
     Route: 048
     Dates: start: 20190809
  6. PREDNISONE [Concomitant]
     Active Substance: PREDNISONE
     Dosage: 10 MILLIGRAM OR 2X DAY
     Route: 048
     Dates: start: 20200901
  7. CHOLECALCIFEROL [Concomitant]
     Active Substance: CHOLECALCIFEROL
     Indication: Product used for unknown indication
     Dosage: 1000 INTERNATIONAL UNIT, QD
     Route: 048
     Dates: start: 20190809
  8. CALCIUM CARBONATE [Concomitant]
     Active Substance: CALCIUM CARBONATE
     Indication: Product used for unknown indication
     Dosage: 1000 MILLIGRAM, BID
     Route: 048
     Dates: start: 20190809
  9. CALCIUM CARBONATE;MAGNESIUM HYDROXIDE [Concomitant]
     Indication: Product used for unknown indication
     Dosage: 165 MILLIGRAM, QD (10MG/800MG)
     Route: 048
     Dates: start: 20190809
  10. MAGNESIUM CITRATE [Concomitant]
     Active Substance: MAGNESIUM CITRATE
     Indication: Anxiety
     Dosage: TWO TO FOUR GUMMIES DAILY, PRN
     Route: 048
     Dates: start: 20200423
  11. MULTIVITAMIN PLUS FISH OIL [Concomitant]
     Indication: Product used for unknown indication
     Dosage: 4 GUMMIES, QD
     Route: 048
     Dates: start: 20210226

REACTIONS (2)
  - Underdose [Unknown]
  - Product container issue [Unknown]

NARRATIVE: CASE EVENT DATE: 20240328
